FAERS Safety Report 5056117-4 (Version None)
Quarter: 2006Q3

REPORT INFORMATION
  Report Type: 
  Country: None (occurrence: None)
  Receive Date: 20060720
  Receipt Date: 20050817
  Transmission Date: 20061208
  Serious: Yes (Death, Hospitalization)
  Sender: FDA-Public Use
  Company Number: US-GLAXOSMITHKLINE-A0570763A

PATIENT
  Age: 20 Year
  Sex: Male
  Weight: 61.4 kg

DRUGS (8)
  1. PAXIL [Suspect]
     Indication: ANXIETY
     Dosage: 10MG AT NIGHT
     Route: 048
     Dates: start: 20010201, end: 20010723
  2. PAXIL CR [Suspect]
     Indication: DEPRESSION
     Dosage: 12.5MG UNKNOWN
     Route: 048
     Dates: start: 20040701
  3. ASPIRIN [Suspect]
  4. TENEX [Concomitant]
  5. ADDERALL 10 [Concomitant]
  6. CONCERTA [Concomitant]
  7. VERELAN [Concomitant]
  8. CLONIDINE [Concomitant]

REACTIONS (5)
  - COMPLETED SUICIDE [None]
  - DEPRESSION [None]
  - OVERDOSE [None]
  - SELF MUTILATION [None]
  - SUICIDAL IDEATION [None]
